FAERS Safety Report 18028422 (Version 2)
Quarter: 2022Q1

REPORT INFORMATION
  Report Type: Spontaneous
  Country: CH (occurrence: CH)
  Receive Date: 20200716
  Receipt Date: 20220202
  Transmission Date: 20220424
  Serious: Yes (Life-Threatening, Hospitalization, Other)
  Sender: FDA-Public Use
  Company Number: CH-SM-2020-13839

PATIENT
  Age: 18 Year
  Sex: Female

DRUGS (3)
  1. IBUPROFEN [Suspect]
     Active Substance: IBUPROFEN
     Indication: Antipyresis
     Dosage: 1800 MILLIGRAM DAILY;
     Route: 048
     Dates: start: 20200531, end: 20200606
  2. METAMIZOLE [Suspect]
     Active Substance: METAMIZOLE
     Indication: Antipyresis
     Dosage: AS NECESSARY
     Route: 048
     Dates: start: 202003, end: 20200606
  3. OLOGYNELLE [Concomitant]
     Dosage: PRESUMABLY CEASED DURING HOSPITALISATION
     Route: 048

REACTIONS (2)
  - Agranulocytosis [Recovering/Resolving]
  - Aplastic anaemia [Recovering/Resolving]

NARRATIVE: CASE EVENT DATE: 20200606
